FAERS Safety Report 13665419 (Version 1)
Quarter: 2017Q2

REPORT INFORMATION
  Report Type: Report from Study
  Country: JP (occurrence: JP)
  Receive Date: 20170619
  Receipt Date: 20170619
  Transmission Date: 20170830
  Serious: Yes (Hospitalization)
  Sender: FDA-Public Use
  Company Number: JP-SA-2017SA108322

PATIENT
  Age: 46 Year
  Sex: Female

DRUGS (2)
  1. REGPARA [Suspect]
     Active Substance: CINACALCET HYDROCHLORIDE
     Route: 048
     Dates: start: 20150911
  2. PHOSBLOCK [Suspect]
     Active Substance: FERRIC HYDROXIDE
     Dosage: 250MG
     Route: 048
     Dates: start: 20140509

REACTIONS (2)
  - Arteriovenous fistula site complication [Recovering/Resolving]
  - Arteriovenous fistula site complication [Recovering/Resolving]

NARRATIVE: CASE EVENT DATE: 20161005
